FAERS Safety Report 14176956 (Version 1)
Quarter: 2017Q4

REPORT INFORMATION
  Report Type: Spontaneous
  Country: CA (occurrence: CA)
  Receive Date: 20171110
  Receipt Date: 20171110
  Transmission Date: 20180321
  Serious: Yes (Hospitalization, Other)
  Sender: FDA-Public Use
  Company Number: CA-APOTEX-2017AP020776

PATIENT
  Age: 59 Year
  Sex: Male

DRUGS (10)
  1. APO-IBUPROFEN [Suspect]
     Active Substance: IBUPROFEN
     Indication: NEUROPATHY PERIPHERAL
  2. APO-IBUPROFEN [Suspect]
     Active Substance: IBUPROFEN
     Indication: FIBROMYALGIA
  3. APO-OXYCODONE CR [Suspect]
     Active Substance: OXYCODONE HYDROCHLORIDE
     Indication: FIBROMYALGIA
  4. APO-OXYCODONE CR [Suspect]
     Active Substance: OXYCODONE HYDROCHLORIDE
     Indication: NEUROPATHY PERIPHERAL
  5. NABILONE [Suspect]
     Active Substance: NABILONE
     Indication: MYALGIA
     Dosage: 1 MG, BID
     Route: 065
  6. APO-OXYCODONE CR [Suspect]
     Active Substance: OXYCODONE HYDROCHLORIDE
     Indication: PAIN
     Dosage: 120 MG, QD
     Route: 048
  7. GABAPENTIN. [Suspect]
     Active Substance: GABAPENTIN
     Indication: PAIN
     Dosage: 600 MG, TID
     Route: 065
  8. APO-FENTANYL MATRIX [Suspect]
     Active Substance: FENTANYL
     Indication: PAIN MANAGEMENT
     Dosage: 37.5 ?G/HOUR
     Route: 065
  9. APO-IBUPROFEN [Suspect]
     Active Substance: IBUPROFEN
     Indication: PAIN
     Dosage: 3600?4800 MG DAILY
     Route: 065
  10. APO-HYDROMORPHONE [Suspect]
     Active Substance: HYDROMORPHONE
     Indication: PAIN MANAGEMENT
     Dosage: 65 MG, UNK
     Route: 048

REACTIONS (7)
  - Drug effect incomplete [Unknown]
  - Hyperaesthesia [Recovering/Resolving]
  - Drug ineffective [Unknown]
  - Drug use disorder [Unknown]
  - Withdrawal syndrome [Recovering/Resolving]
  - Haematemesis [Recovered/Resolved]
  - Duodenal ulcer haemorrhage [Recovered/Resolved]
